FAERS Safety Report 20475421 (Version 1)
Quarter: 2022Q1

REPORT INFORMATION
  Report Type: Spontaneous
  Country: US (occurrence: US)
  Receive Date: 20220215
  Receipt Date: 20220215
  Transmission Date: 20220423
  Serious: Yes (Other)
  Sender: FDA-Public Use
  Company Number: US-PFIZER INC-202200194207

PATIENT

DRUGS (5)
  1. LEVETIRACETAM [Suspect]
     Active Substance: LEVETIRACETAM
     Dosage: 2000 MG, 2X/DAY
     Route: 064
  2. CARBAMAZEPINE [Suspect]
     Active Substance: CARBAMAZEPINE
     Dosage: 400 MG, 2X/DAY
     Route: 064
  3. PHENOBARBITAL [Suspect]
     Active Substance: PHENOBARBITAL
     Dosage: 90 MG, DAILY (30 MG IN THE A.M. AND 60 MG IN THE P.M.)
     Route: 064
  4. PHENOBARBITAL [Suspect]
     Active Substance: PHENOBARBITAL
     Dosage: UNK (TAKING HALF OF THE PHENOBARBITAL DOSE THAN SHE WAS PRESCRIBED)
     Route: 064
  5. FOLIC ACID [Suspect]
     Active Substance: FOLIC ACID
     Dosage: 4 MG, DAILY
     Route: 064

REACTIONS (2)
  - Exposure during pregnancy [Unknown]
  - Dandy-Walker syndrome [Unknown]
